FAERS Safety Report 4417982-4 (Version None)
Quarter: 2004Q3

REPORT INFORMATION
  Report Type: 
  Country: None (occurrence: None)
  Receive Date: 20040804
  Receipt Date: 20040715
  Transmission Date: 20050211
  Serious: Yes (Death, Hospitalization)
  Sender: FDA-Public Use
  Company Number: D01200402600

PATIENT
  Age: 75 Year
  Sex: Female

DRUGS (7)
  1. (OXALIPLATIN) - SOLUTION- 85 MG/M2 [Suspect]
     Dosage: 85 MG/M2 Q2W; INTRAVENOUS NOS
     Route: 042
     Dates: start: 20040607, end: 20040607
  2. FLUOROURACIL [Suspect]
     Dosage: 400MG/M2 AS IV BOLUS THEN 600 MG/M2 AS 22 HOURS CONTINUES D1-D2  Q2W, INTRAVENOUS NOS
     Route: 042
     Dates: start: 20040607, end: 20040608
  3. (SR57746 OR PLACEBO) - CAPSULE - 1 MG [Suspect]
     Indication: CHEMOTHERAPY
     Dosage: 1 MG QD
     Route: 048
     Dates: start: 20040323, end: 20040625
  4. (SR57746 OR PLACEBO) - CAPSULE - 1 MG [Suspect]
     Indication: COLORECTAL CANCER METASTATIC
     Dosage: 1 MG QD
     Route: 048
     Dates: start: 20040323, end: 20040625
  5. (SR57746 OR PLACEBO) - CAPSULE - 1 MG [Suspect]
     Indication: NEUROTOXICITY
     Dosage: 1 MG QD
     Route: 048
     Dates: start: 20040323, end: 20040625
  6. (SR57746 OR PLACEBO) - CAPSULE - 1 MG [Suspect]
     Indication: PROPHYLAXIS
     Dosage: 1 MG QD
     Route: 048
     Dates: start: 20040323, end: 20040625
  7. LEUCOVORIN CALCIUM [Suspect]
     Dosage: 200 MG/M2 AS 2 HOURS INFUSION ON D1-DE  Q2W; INTRAVENOUS NOS
     Route: 042
     Dates: start: 20040607, end: 20040608

REACTIONS (5)
  - ANAEMIA [None]
  - BRONCHOPNEUMONIA [None]
  - C-REACTIVE PROTEIN INCREASED [None]
  - HYPOALBUMINAEMIA [None]
  - NEUTROPENIA [None]
